FAERS Safety Report 8108226-0 (Version None)
Quarter: 2012Q1

REPORT INFORMATION
  Report Type: 
  Country: None (occurrence: None)
  Receive Date: 20120202
  Receipt Date: 20120130
  Transmission Date: 20120608
  Serious: Yes (Hospitalization)
  Sender: FDA-Public Use
  Company Number: GB-GLAXOSMITHKLINE-Z0003698A

PATIENT
  Sex: Female
  Weight: 56.3 kg

DRUGS (3)
  1. CYCLOPHOSPHAMIDE [Suspect]
     Indication: CHRONIC LYMPHOCYTIC LEUKAEMIA
     Route: 042
     Dates: start: 20100204
  2. OFATUMUMAB [Suspect]
     Indication: CHRONIC LYMPHOCYTIC LEUKAEMIA
     Route: 042
     Dates: start: 20100203
  3. FLUDARABINE [Suspect]
     Indication: CHRONIC LYMPHOCYTIC LEUKAEMIA
     Route: 042
     Dates: start: 20100204

REACTIONS (2)
  - FEBRILE NEUTROPENIA [None]
  - NEUTROPENIA [None]
